FAERS Safety Report 6126584-3 (Version None)
Quarter: 2009Q1

REPORT INFORMATION
  Report Type: 
  Country: None (occurrence: None)
  Receive Date: 20090320
  Receipt Date: 20090310
  Transmission Date: 20090719
  Serious: Yes (Disabling, Other)
  Sender: FDA-Public Use
  Company Number: AU-PFIZER INC-2008069616

PATIENT

DRUGS (13)
  1. LIPITOR [Suspect]
     Indication: HYPERCHOLESTEROLAEMIA
     Route: 048
     Dates: start: 20080116
  2. LIPITOR [Suspect]
     Indication: AORTIC ANEURYSM
  3. LIPITOR [Suspect]
     Indication: TYPE IIA HYPERLIPIDAEMIA
  4. LIPITOR [Suspect]
     Indication: MYOCARDIAL ISCHAEMIA
  5. MOBIC [Concomitant]
     Indication: BACK PAIN
     Dosage: 15 MG, 1X/DAY
     Route: 048
     Dates: start: 20080109
  6. MOBIC [Concomitant]
     Indication: NECK PAIN
  7. CHAMPIX [Concomitant]
     Indication: SMOKING CESSATION THERAPY
     Route: 048
     Dates: start: 20080218
  8. ASPIRIN [Concomitant]
  9. FISH OIL [Concomitant]
  10. IBUPROFEN TABLETS [Concomitant]
  11. IBUPROFEN TABLETS [Concomitant]
  12. AVANZA (MIRTAZAPINE) [Concomitant]
  13. ALCOHOL [Concomitant]

REACTIONS (10)
  - DEPRESSION [None]
  - HEPATOSPLENOMEGALY [None]
  - HYPERHIDROSIS [None]
  - LYMPHADENOPATHY [None]
  - MUSCLE ATROPHY [None]
  - MYOPATHY [None]
  - MYOSITIS [None]
  - STRESS [None]
  - TRANSAMINASES INCREASED [None]
  - WEIGHT DECREASED [None]
